FAERS Safety Report 12917887 (Version 4)
Quarter: 2017Q1

REPORT INFORMATION
  Report Type: Spontaneous
  Country: US (occurrence: US)
  Receive Date: 20161107
  Receipt Date: 20170224
  Transmission Date: 20170428
  Serious: No
  Sender: FDA-Public Use
  Company Number: US-ASTRAZENECA-2016SF13484

PATIENT
  Age: 77 Year
  Sex: Male
  Weight: 86.2 kg

DRUGS (14)
  1. AMLODIPINE BYSALATE [Concomitant]
     Indication: BLOOD PRESSURE ABNORMAL
     Route: 048
  2. KLOR-CON [Concomitant]
     Active Substance: POTASSIUM CHLORIDE
     Indication: SUPPLEMENTATION THERAPY
     Dosage: TWO TIMES A DAY
     Route: 048
     Dates: start: 2014
  3. FUROSEMIDE. [Concomitant]
     Active Substance: FUROSEMIDE
     Indication: DIURETIC THERAPY
     Route: 048
     Dates: start: 2014
  4. TAMSULOSIN [Concomitant]
     Active Substance: TAMSULOSIN
     Indication: PROSTATOMEGALY
     Route: 048
     Dates: start: 2006
  5. ALBUTEROL VIA NEBULIZER [Concomitant]
     Indication: PULMONARY CONGESTION
     Dosage: AS REQUIRED
     Route: 055
     Dates: start: 2013
  6. TUDORZA PRESSAIR [Suspect]
     Active Substance: ACLIDINIUM BROMIDE
     Indication: BRONCHITIS CHRONIC
     Route: 055
     Dates: start: 201601
  7. BRIMONIDINE [Concomitant]
     Active Substance: BRIMONIDINE TARTRATE
     Indication: INTRAOCULAR PRESSURE TEST
     Dosage: 10 ML ONE DROP IN EACH EYE TWICE A DAY
     Route: 031
     Dates: start: 2016
  8. LATANOPROST. [Concomitant]
     Active Substance: LATANOPROST
     Indication: INTRAOCULAR PRESSURE TEST
     Dosage: 2.5 ML ONE DROP IN EACH EYE AT NIGHT
     Route: 031
     Dates: start: 2016
  9. ASPIRIN. [Concomitant]
     Active Substance: ASPIRIN
     Route: 048
  10. VITAMIN D3 [Concomitant]
     Active Substance: CHOLECALCIFEROL
     Indication: VITAMIN D DEFICIENCY
     Dosage: 50,000 IU ONCE A WEEK FOR EIGHT WEEKS
     Route: 048
  11. TUDORZA PRESSAIR [Suspect]
     Active Substance: ACLIDINIUM BROMIDE
     Indication: CHRONIC OBSTRUCTIVE PULMONARY DISEASE
     Route: 055
     Dates: start: 201601
  12. VITAMIN D3 [Concomitant]
     Active Substance: CHOLECALCIFEROL
     Indication: VITAMIN D DEFICIENCY
     Route: 048
     Dates: start: 2014
  13. TUDORZA PRESSAIR [Suspect]
     Active Substance: ACLIDINIUM BROMIDE
     Indication: EMPHYSEMA
     Route: 055
     Dates: start: 201601
  14. ADVAIR HFA [Concomitant]
     Active Substance: FLUTICASONE PROPIONATE\SALMETEROL XINAFOATE
     Indication: CHRONIC OBSTRUCTIVE PULMONARY DISEASE
     Dosage: 230/21, TWO TIMES A DAY
     Route: 055
     Dates: start: 2012

REACTIONS (7)
  - Dyspnoea [Unknown]
  - Device malfunction [Unknown]
  - Circumstance or information capable of leading to medication error [Unknown]
  - Joint swelling [Unknown]
  - Intraocular pressure increased [Unknown]
  - Vitamin D deficiency [Unknown]
  - Intentional product use issue [Unknown]

NARRATIVE: CASE EVENT DATE: 2016
